FAERS Safety Report 5206666-0 (Version None)
Quarter: 2007Q1

REPORT INFORMATION
  Report Type: 
  Country: None (occurrence: None)
  Receive Date: 20070109
  Receipt Date: 20070101
  Transmission Date: 20070707
  Serious: Yes (Death, Hospitalization)
  Sender: FDA-Public Use
  Company Number: 201303

PATIENT
  Age: 79 Year
  Sex: Female
  Weight: 65 kg

DRUGS (3)
  1. MABTHERA(RITUXIMAB) CONC FOR SOLUTION FOR INFUSION [Suspect]
     Indication: LYMPHOMA
     Dosage: 637.5 MG, INTRAVENOUS
     Route: 042
     Dates: start: 20020201, end: 20020301
  2. DIANTALVIC (ACETAMINOPHEN, PROPOXYPHENE HYDROCHLORIDE) [Concomitant]
  3. FELDENE [Concomitant]

REACTIONS (14)
  - CHOLESTASIS [None]
  - COMA HEPATIC [None]
  - CYTOLYTIC HEPATITIS [None]
  - DEMENTIA ALZHEIMER'S TYPE [None]
  - DISORIENTATION [None]
  - GENERAL PHYSICAL HEALTH DETERIORATION [None]
  - HEPATIC ENCEPHALOPATHY [None]
  - HEPATIC FAILURE [None]
  - HEPATITIS B [None]
  - HEPATOMEGALY [None]
  - HEPATOSPLENOMEGALY [None]
  - IMMUNOSUPPRESSION [None]
  - PORTAL HYPERTENSION [None]
  - VITAMIN K DEFICIENCY [None]
